FAERS Safety Report 4350428-3 (Version None)
Quarter: 2004Q2

REPORT INFORMATION
  Report Type: 
  Country: None (occurrence: None)
  Receive Date: 20040427
  Receipt Date: 20040421
  Transmission Date: 20050107
  Serious: Yes (Other)
  Sender: FDA-Public Use
  Company Number: 2004209950US

PATIENT
  Sex: Female

DRUGS (2)
  1. CELEBREX [Suspect]
  2. LIPITOR [Suspect]

REACTIONS (2)
  - HEPATIC LESION [None]
  - HERNIA [None]
